FAERS Safety Report 14702265 (Version 1)
Quarter: 2018Q2

REPORT INFORMATION
  Report Type: Spontaneous
  Country: CO (occurrence: CO)
  Receive Date: 20180401
  Receipt Date: 20180401
  Transmission Date: 20180711
  Serious: Yes (Hospitalization)
  Sender: FDA-Public Use
  Company Number: CO-SHIRE-CO201812140

PATIENT

DRUGS (1)
  1. KIOVIG [Suspect]
     Active Substance: HUMAN IMMUNOGLOBULIN G
     Indication: PRODUCT USED FOR UNKNOWN INDICATION
     Dosage: 15 G, UNK
     Route: 065

REACTIONS (4)
  - Chest pain [Unknown]
  - Vomiting [Unknown]
  - Nausea [Unknown]
  - Urticaria [Unknown]
